FAERS Safety Report 7482427-7 (Version None)
Quarter: 2011Q2

REPORT INFORMATION
  Report Type: 
  Country: None (occurrence: None)
  Receive Date: 20110516
  Receipt Date: 20110510
  Transmission Date: 20111010
  Serious: Yes (Hospitalization, Other)
  Sender: FDA-Public Use
  Company Number: JP-PFIZER INC-2011025239

PATIENT
  Age: 58 Year
  Sex: Female
  Weight: 65 kg

DRUGS (9)
  1. ALDACTONE [Concomitant]
     Indication: OEDEMA
     Dosage: 25 MG, 1X/DAY
     Route: 048
     Dates: start: 20100428
  2. ALENDRONATE SODIUM [Concomitant]
     Indication: OSTEOPOROSIS
     Dosage: 35 MG, WEEKLY
     Route: 048
     Dates: start: 20100428
  3. HERCEPTIN [Concomitant]
     Indication: BREAST CANCER
     Dosage: 360 MG, EVERY 3 WEEKS
     Route: 041
     Dates: start: 20100127, end: 20110331
  4. LEPETAN [Concomitant]
     Indication: PAIN
     Dosage: 0.4 MG, AS NEEDED
     Route: 054
     Dates: start: 20101216
  5. LYRICA [Suspect]
     Indication: PAIN
     Dosage: 75 MG, 2X/DAY
     Route: 048
     Dates: start: 20101216, end: 20110112
  6. ONE-ALPHA [Concomitant]
     Indication: OSTEOPOROSIS
     Dosage: 0.5 UG, 2X/DAY
     Route: 048
     Dates: start: 20100428
  7. CELECOXIB [Suspect]
     Indication: PAIN
     Dosage: 100 MG, 2X/DAY
     Route: 048
     Dates: start: 20101216, end: 20110112
  8. LOXONIN [Suspect]
     Indication: PAIN
     Dosage: 60 MG, 3X/DAY
     Route: 048
     Dates: start: 20100428, end: 20110112
  9. LASIX [Concomitant]
     Indication: OEDEMA
     Dosage: 20 MG, 2X/DAY
     Route: 048
     Dates: start: 20100428

REACTIONS (7)
  - ALANINE AMINOTRANSFERASE INCREASED [None]
  - BLOOD CREATINE PHOSPHOKINASE INCREASED [None]
  - BLOOD UREA INCREASED [None]
  - BLOOD CREATININE INCREASED [None]
  - BLOOD POTASSIUM INCREASED [None]
  - MYALGIA [None]
  - ASPARTATE AMINOTRANSFERASE INCREASED [None]
